FAERS Safety Report 8318029-X (Version None)
Quarter: 2012Q2

REPORT INFORMATION
  Report Type: 
  Country: None (occurrence: None)
  Receive Date: 20120427
  Receipt Date: 20120425
  Transmission Date: 20120825
  Serious: Yes (Death)
  Sender: FDA-Public Use
  Company Number: US-ROCHE-1027866

PATIENT
  Sex: Female
  Weight: 89.892 kg

DRUGS (1)
  1. XELODA [Suspect]
     Indication: BREAST CANCER METASTATIC
     Route: 048
     Dates: start: 20111101

REACTIONS (3)
  - FATIGUE [None]
  - DEATH [None]
  - NAUSEA [None]
